FAERS Safety Report 8025075 (Version 4)
Quarter: 2012Q4

REPORT INFORMATION
  Report Type: 
  Country: US (occurrence: US)
  Receive Date: 20110707
  Receipt Date: 20121030
  Transmission Date: 20130627
  Serious: Yes (Other)
  Sender: FDA-Public Use
  Company Number: US-ROCHE-787538

PATIENT
  Age: 24 Year
  Sex: Male
  Weight: 100.33 kg

DRUGS (1)
  1. ACCUTANE [Suspect]
     Indication: PRODUCT USED FOR UNKNOWN INDICATION
     Route: 065

REACTIONS (4)
  - Irritable bowel syndrome [Unknown]
  - Injury [Unknown]
  - Depression [Unknown]
  - Colitis microscopic [Unknown]
